FAERS Safety Report 19261951 (Version 1)
Quarter: 2021Q2

REPORT INFORMATION
  Report Type: Spontaneous
  Country: IT (occurrence: IT)
  Receive Date: 20210516
  Receipt Date: 20210516
  Transmission Date: 20210717
  Serious: Yes (Hospitalization)
  Sender: FDA-Public Use
  Company Number: IT-AUROBINDO-AUR-APL-2021-019537

PATIENT
  Age: 25 Year
  Sex: Female

DRUGS (1)
  1. CEFIXIME FILM COATED TABLET [Suspect]
     Active Substance: CEFIXIME
     Indication: EAR INFECTION
     Dosage: 400 MILLIGRAM, ONCE A DAY
     Route: 048

REACTIONS (3)
  - Eyelid oedema [Recovering/Resolving]
  - Rash [Recovering/Resolving]
  - Face oedema [Recovering/Resolving]

NARRATIVE: CASE EVENT DATE: 20210126
